FAERS Safety Report 5263491-2 (Version None)
Quarter: 2007Q1

REPORT INFORMATION
  Report Type: 
  Country: None (occurrence: None)
  Receive Date: 20070313
  Receipt Date: 20070306
  Transmission Date: 20070707
  Serious: Yes (Death, Hospitalization, Other)
  Sender: FDA-Public Use
  Company Number: US-BAYER-200710765BWH

PATIENT
  Age: 83 Year
  Sex: Male

DRUGS (1)
  1. TRASYLOL [Suspect]
     Indication: CORONARY ARTERY BYPASS
     Dosage: UNIT DOSE: 2000000 KIU
     Route: 042
     Dates: start: 20060301, end: 20060301

REACTIONS (13)
  - ANAEMIA [None]
  - ATRIAL FIBRILLATION [None]
  - BLOOD POTASSIUM INCREASED [None]
  - CARDIAC FAILURE [None]
  - CARDIAC FAILURE CONGESTIVE [None]
  - CARDIAC VALVE DISEASE [None]
  - COAGULOPATHY [None]
  - COMA [None]
  - DEATH [None]
  - DYSPNOEA [None]
  - INFECTION [None]
  - RENAL FAILURE [None]
  - RESPIRATORY FAILURE [None]
